FAERS Safety Report 9015281 (Version 1)
Quarter: 2013Q1

REPORT INFORMATION
  Report Type: Spontaneous
  Country: US (occurrence: None)
  Receive Date: 20130109
  Receipt Date: 20130109
  Transmission Date: 20140127
  Serious: No
  Sender: FDA-Public Use
  Company Number: None

PATIENT
  Sex: Male
  Weight: 84.82 kg

DRUGS (1)
  1. TRAZODONE HCL 100 MG. SHOPRITE RX PHARMACY [Suspect]
     Indication: SLEEP DISORDER
     Dosage: 100MG ONCE AT NIGHT ORAL
     Route: 048
     Dates: start: 20130103, end: 20130105

REACTIONS (2)
  - Hyperventilation [None]
  - Dyskinesia [None]
